FAERS Safety Report 4389127-0 (Version None)
Quarter: 2004Q2

REPORT INFORMATION
  Report Type: 
  Country: None (occurrence: None)
  Receive Date: 20040630
  Receipt Date: 20040625
  Transmission Date: 20050107
  Serious: Yes (Hospitalization)
  Sender: FDA-Public Use
  Company Number: 200412075GDS

PATIENT
  Age: 61 Year
  Sex: Male

DRUGS (4)
  1. ASPIRIN [Suspect]
     Indication: ISCHAEMIC STROKE
     Dosage: 300 MG, TOTAL DAILY
  2. ENOXAPARIN SODIUM [Suspect]
     Dosage: BID, SUBCUTANEOUS
     Route: 058
  3. DIGOXIN [Concomitant]
  4. ENALAPRIL MALEATE [Concomitant]

REACTIONS (3)
  - BLOOD FIBRINOGEN INCREASED [None]
  - HAEMORRHAGIC TRANSFORMATION STROKE [None]
  - HIGH DENSITY LIPOPROTEIN DECREASED [None]
